FAERS Safety Report 9862888 (Version 4)
Quarter: 2014Q1

REPORT INFORMATION
  Report Type: Report from Study
  Country: BE (occurrence: BE)
  Receive Date: 20140203
  Receipt Date: 20140327
  Transmission Date: 20141002
  Serious: Yes (Other)
  Sender: FDA-Public Use
  Company Number: PHHY2014BE010456

PATIENT
  Age: 0 Day
  Sex: Male
  Weight: 3 kg

DRUGS (3)
  1. GILENYA [Suspect]
     Dosage: MATERNAL DOSE:0.5 MG DAILY
     Route: 064
  2. YASMIN [Concomitant]
     Route: 064
     Dates: start: 20130301
  3. OMNIBIONTA [Concomitant]
     Route: 064
     Dates: start: 201305

REACTIONS (3)
  - Premature baby [Unknown]
  - Gastrooesophageal reflux disease [Unknown]
  - Foetal exposure during pregnancy [Unknown]
